FAERS Safety Report 15274664 (Version 3)
Quarter: 2018Q4

REPORT INFORMATION
  Report Type: Report from Study
  Country: None (occurrence: US)
  Receive Date: 20180814
  Receipt Date: 20181101
  Transmission Date: 20190204
  Serious: Yes (Hospitalization, Other)
  Sender: FDA-Public Use
  Company Number: US-ABBVIE-18K-163-2449155-00

PATIENT
  Age: 68 Year
  Sex: Male
  Weight: 86.26 kg

DRUGS (2)
  1. HUMIRA [Suspect]
     Active Substance: ADALIMUMAB
     Route: 058
     Dates: start: 20181020
  2. HUMIRA [Suspect]
     Active Substance: ADALIMUMAB
     Indication: RHEUMATOID ARTHRITIS
     Route: 058
     Dates: start: 2012, end: 20180922

REACTIONS (5)
  - Headache [Unknown]
  - Rash pruritic [Not Recovered/Not Resolved]
  - Pain in jaw [Recovering/Resolving]
  - Blindness unilateral [Recovered/Resolved]
  - Temporal arteritis [Recovering/Resolving]

NARRATIVE: CASE EVENT DATE: 201806
